FAERS Safety Report 14991811 (Version 1)
Quarter: 2018Q2

REPORT INFORMATION
  Report Type: Spontaneous
  Country: GB (occurrence: GB)
  Receive Date: 20180608
  Receipt Date: 20180608
  Transmission Date: 20180711
  Serious: Yes (Life-Threatening)
  Sender: FDA-Public Use
  Company Number: PHHY2018GB018246

PATIENT

DRUGS (2)
  1. BISOPROLOL FUMARATE SANDOZ [Suspect]
     Active Substance: BISOPROLOL FUMARATE
     Indication: PRODUCT USED FOR UNKNOWN INDICATION
     Dosage: 1.25 MG, UNK
     Route: 065
  2. BISOPROLOL FUMARATE SANDOZ [Suspect]
     Active Substance: BISOPROLOL FUMARATE
     Dosage: 2.5 MG, UNK
     Route: 065

REACTIONS (3)
  - Wheezing [Recovering/Resolving]
  - General physical health deterioration [Unknown]
  - Dyspnoea [Recovering/Resolving]
